FAERS Safety Report 20692875 (Version 1)
Quarter: 2022Q2

REPORT INFORMATION
  Report Type: Spontaneous
  Country: US (occurrence: None)
  Receive Date: 20220407
  Receipt Date: 20220407
  Transmission Date: 20220721
  Serious: Yes (Other)
  Sender: FDA-Public Use
  Company Number: None

PATIENT
  Age: 55 Year
  Sex: Female

DRUGS (9)
  1. AJOVY [Suspect]
     Active Substance: FREMANEZUMAB-VFRM
     Indication: Migraine
     Dosage: OTHER FREQUENCY : Q 28 DAYS;?
     Route: 058
     Dates: start: 20200311
  2. TRAMADOL HYDROCHLORIDE [Concomitant]
     Active Substance: TRAMADOL HYDROCHLORIDE
  3. DESVENLAFAXINE ER SUCCINATE 50MG T [Concomitant]
  4. ASPIRIN 325MG TABLETS [Concomitant]
  5. DICYCLOMINE 20MG TABLETS [Concomitant]
  6. GABAPENTIN 800MG TABLETS [Concomitant]
  7. LYRICA 75MG CAPSULES [Concomitant]
  8. METOCLOPRAMIDE 5MG TABLETS [Concomitant]
  9. ONDANSETRON HYDROCHLORIDE [Concomitant]
     Active Substance: ONDANSETRON HYDROCHLORIDE

REACTIONS (2)
  - Intestinal obstruction [None]
  - Duodenal ulcer [None]

NARRATIVE: CASE EVENT DATE: 20220405
